FAERS Safety Report 6714881-X (Version None)
Quarter: 2010Q2

REPORT INFORMATION
  Report Type: 
  Country: None (occurrence: None)
  Receive Date: 20100507
  Receipt Date: 20100427
  Transmission Date: 20101027
  Serious: Yes (Hospitalization)
  Sender: FDA-Public Use
  Company Number: FR-BAYER-201023778GPV

PATIENT
  Age: 30 Year
  Sex: Female

DRUGS (1)
  1. MIRENA [Suspect]
     Indication: DRUG USE FOR UNKNOWN INDICATION
     Route: 015
     Dates: start: 20100203, end: 20100301

REACTIONS (5)
  - CARDIAC FAILURE [None]
  - MULTI-ORGAN FAILURE [None]
  - PERITONITIS [None]
  - PYREXIA [None]
  - STREPTOCOCCAL INFECTION [None]
